FAERS Safety Report 9795385 (Version 1)
Quarter: 2014Q1

REPORT INFORMATION
  Report Type: Spontaneous
  Country: US (occurrence: US)
  Receive Date: 20140103
  Receipt Date: 20140103
  Transmission Date: 20141002
  Serious: No
  Sender: FDA-Public Use
  Company Number: US-009507513-1401USA000180

PATIENT
  Age: 80 Year
  Sex: Female

DRUGS (6)
  1. SINEMET [Suspect]
     Indication: PARKINSON^S DISEASE
     Dosage: 2.5 PILLS A DAY, TID
     Route: 048
     Dates: start: 1998
  2. IRON (UNSPECIFIED) [Suspect]
     Dosage: FORMULATION: IRON SALT
  3. SYNTHROID [Concomitant]
  4. AZELEX [Concomitant]
  5. REQUIP [Concomitant]
  6. HYDROCHLORTHIAZID [Concomitant]

REACTIONS (4)
  - Fall [Not Recovered/Not Resolved]
  - Tremor [Not Recovered/Not Resolved]
  - Peripheral coldness [Not Recovered/Not Resolved]
  - Abasia [Not Recovered/Not Resolved]
